FAERS Safety Report 6817499-3 (Version None)
Quarter: 2010Q3

REPORT INFORMATION
  Report Type: 
  Country: None (occurrence: None)
  Receive Date: 20100706
  Receipt Date: 20100630
  Transmission Date: 20110219
  Serious: Yes (Other)
  Sender: FDA-Public Use
  Company Number: B0660925A

PATIENT
  Sex: Female

DRUGS (4)
  1. DEROXAT [Suspect]
     Indication: DEPRESSION
     Dosage: 20MG TWICE PER DAY
     Route: 048
     Dates: start: 20100319
  2. ANAFRANIL [Suspect]
     Indication: DEPRESSION
     Dosage: 10MG PER DAY
     Route: 048
     Dates: start: 20100319, end: 20100615
  3. NOCTAMIDE [Concomitant]
     Indication: INSOMNIA
     Dosage: 1MG PER DAY
     Route: 048
     Dates: start: 20100215, end: 20100310
  4. LYSANXIA [Concomitant]
     Indication: INSOMNIA
     Dosage: 10U PER DAY
     Route: 048
     Dates: end: 20100515

REACTIONS (3)
  - BLOOD PROLACTIN INCREASED [None]
  - BREAST ENLARGEMENT [None]
  - GALACTORRHOEA [None]
